FAERS Safety Report 16357554 (Version 1)
Quarter: 2019Q2

REPORT INFORMATION
  Report Type: Report from Study
  Country: US (occurrence: US)
  Receive Date: 20190527
  Receipt Date: 20190527
  Transmission Date: 20190711
  Serious: Yes (Death)
  Sender: FDA-Public Use
  Company Number: US-PFIZER INC-2019215105

PATIENT
  Age: 4 Year

DRUGS (2)
  1. DIPHENHYDRAMINE HCL [Suspect]
     Active Substance: DIPHENHYDRAMINE HYDROCHLORIDE
     Dosage: UNK
  2. CHLORPHENIRAMINE;HYDROCODONE [Suspect]
     Active Substance: CHLORPHENIRAMINE\HYDROCODONE
     Dosage: 0.5 DF, DAILY (PARENT ADMINISTERED 0.5 TSP/DAY)

REACTIONS (2)
  - Overdose [Fatal]
  - Contraindicated product administered [Fatal]
